FAERS Safety Report 8308116-4 (Version None)
Quarter: 2012Q2

REPORT INFORMATION
  Report Type: 
  Country: None (occurrence: None)
  Receive Date: 20120424
  Receipt Date: 20120419
  Transmission Date: 20120825
  Serious: Yes (Other)
  Sender: FDA-Public Use
  Company Number: PHHY2012MX034036

PATIENT
  Sex: Female

DRUGS (2)
  1. DIOVAN [Suspect]
     Indication: HYPERTENSION
     Dosage: 2 TABLETS DAILY
     Dates: start: 20110201, end: 20120418
  2. DIOVAN [Suspect]
     Dosage: 1 TABLET DAILY
     Dates: start: 20120419

REACTIONS (1)
  - CARDIAC FAILURE [None]
